FAERS Safety Report 5253851-8 (Version None)
Quarter: 2007Q1

REPORT INFORMATION
  Report Type: 
  Country: None (occurrence: None)
  Receive Date: 20070227
  Receipt Date: 20070221
  Transmission Date: 20070707
  Serious: Yes (Hospitalization)
  Sender: FDA-Public Use
  Company Number: 236988

PATIENT
  Age: 70 Year
  Sex: Female

DRUGS (3)
  1. AVASTIN [Suspect]
     Indication: NON-SMALL CELL LUNG CANCER
  2. DOCETAXEL [Concomitant]
  3. CISPLATIN [Concomitant]

REACTIONS (2)
  - DYSPNOEA [None]
  - HEART RATE INCREASED [None]
